FAERS Safety Report 17493248 (Version 1)
Quarter: 2020Q1

REPORT INFORMATION
  Report Type: Spontaneous
  Country: US (occurrence: US)
  Receive Date: 20200304
  Receipt Date: 20200304
  Transmission Date: 20200409
  Serious: Yes (Hospitalization, Other)
  Sender: FDA-Public Use
  Company Number: US-HIKMA PHARMACEUTICALS USA INC.-US-H14001-20-50712

PATIENT
  Age: 22 Year
  Sex: Male

DRUGS (5)
  1. HALOPERIDOL DECANOATE. [Suspect]
     Active Substance: HALOPERIDOL DECANOATE
     Indication: PSYCHOTIC DISORDER
     Dosage: ()
     Route: 065
  2. HALOPERIDOL DECANOATE. [Suspect]
     Active Substance: HALOPERIDOL DECANOATE
     Indication: PSYCHOTIC DISORDER
     Dosage: TAPER ()
  3. HALOPERIDOL. [Suspect]
     Active Substance: HALOPERIDOL
     Indication: PSYCHOTIC DISORDER
     Dosage: TAPERED HALOPERIDOL ()
     Route: 048
  4. VALPROIC ACID. [Concomitant]
     Active Substance: VALPROIC ACID
     Indication: PSYCHOTIC DISORDER
     Dosage: ()
     Route: 048
  5. HALOPERIDOL. [Suspect]
     Active Substance: HALOPERIDOL
     Indication: PSYCHOTIC DISORDER
     Dosage: ()
     Route: 048

REACTIONS (7)
  - Dysphagia [Recovered/Resolved]
  - Tremor [Recovered/Resolved]
  - Joint range of motion decreased [Recovered/Resolved]
  - Extrapyramidal disorder [Recovered/Resolved]
  - Reduced facial expression [Recovered/Resolved]
  - Bradykinesia [Recovered/Resolved]
  - Musculoskeletal stiffness [Recovered/Resolved]
